FAERS Safety Report 14252973 (Version 2)
Quarter: 2017Q4

REPORT INFORMATION
  Report Type: Spontaneous
  Country: ES (occurrence: ES)
  Receive Date: 20171206
  Receipt Date: 20171219
  Transmission Date: 20180321
  Serious: Yes (Other)
  Sender: FDA-Public Use
  Company Number: ES-CONCORDIA PHARMACEUTICALS INC.-GSH201712-006566

PATIENT
  Age: 72 Year
  Sex: Female

DRUGS (4)
  1. DIGOXIN. [Suspect]
     Active Substance: DIGOXIN
  2. QUETIAPINE. [Concomitant]
     Active Substance: QUETIAPINE
  3. RISPERIDONE. [Concomitant]
     Active Substance: RISPERIDONE
  4. IVABRADINE [Concomitant]
     Active Substance: IVABRADINE
     Dosage: LOW DOSE

REACTIONS (3)
  - Mania [Recovering/Resolving]
  - Psychotic symptom [Recovering/Resolving]
  - Toxicity to various agents [Unknown]
